FAERS Safety Report 8267393-9 (Version None)
Quarter: 2012Q2

REPORT INFORMATION
  Report Type: 
  Country: None (occurrence: None)
  Receive Date: 20120409
  Receipt Date: 20120330
  Transmission Date: 20120825
  Serious: No
  Sender: FDA-Public Use
  Company Number: PHHY2012CA028009

PATIENT
  Sex: Male

DRUGS (3)
  1. TASIGNA [Suspect]
     Indication: CHRONIC MYELOID LEUKAEMIA
     Dosage: 400 MG, QID
     Route: 048
  2. TASIGNA [Suspect]
     Dosage: 400 MG BID
     Route: 048
  3. TASIGNA [Suspect]
     Dosage: 400 MG TID
     Route: 048

REACTIONS (4)
  - DYSPHONIA [None]
  - RASH [None]
  - INSOMNIA [None]
  - PAIN IN EXTREMITY [None]
